FAERS Safety Report 18786927 (Version 1)
Quarter: 2021Q1

REPORT INFORMATION
  Report Type: Spontaneous
  Country: US (occurrence: US)
  Receive Date: 20210125
  Receipt Date: 20210125
  Transmission Date: 20210419
  Serious: No
  Sender: FDA-Public Use
  Company Number: US-ROCHE-2622903

PATIENT
  Sex: Female

DRUGS (17)
  1. ALBUTEROL HFA [Concomitant]
     Active Substance: ALBUTEROL SULFATE
  2. DEXILANT [Concomitant]
     Active Substance: DEXLANSOPRAZOLE
  3. DIOVAN [Concomitant]
     Active Substance: VALSARTAN
  4. VOLTAREN [Concomitant]
     Active Substance: DICLOFENAC SODIUM
  5. METOPROLOL SUCCINATE ER [Concomitant]
     Active Substance: METOPROLOL SUCCINATE
  6. ENBREL [Concomitant]
     Active Substance: ETANERCEPT
  7. GABAPENTIN. [Concomitant]
     Active Substance: GABAPENTIN
  8. ISOSORBIDE DINITRATE. [Concomitant]
     Active Substance: ISOSORBIDE DINITRATE
  9. RITUXAN [Suspect]
     Active Substance: RITUXIMAB
     Indication: IMPAIRED GASTRIC EMPTYING
     Dosage: ON DAY 1 AND DAY 15 EVERY 4 TO 6 MONTHS (STRENGTH: 500MG/50 ML)
     Route: 042
  10. FOLIC ACID. [Concomitant]
     Active Substance: FOLIC ACID
  11. TRAMADOL HCL [Concomitant]
     Active Substance: TRAMADOL HYDROCHLORIDE
  12. AMLODIPINE BESILATE [Concomitant]
     Active Substance: AMLODIPINE BESYLATE
  13. DICYCLOMINE HCL [Concomitant]
     Active Substance: DICYCLOMINE HYDROCHLORIDE
  14. LOSARTAN POTASSIUM. [Concomitant]
     Active Substance: LOSARTAN POTASSIUM
  15. PREDNISONE. [Concomitant]
     Active Substance: PREDNISONE
  16. LANTUS SOLOSTAR [Concomitant]
     Active Substance: INSULIN GLARGINE
  17. LEVOCETIRIZINE DIHYDROCHLORIDE. [Concomitant]
     Active Substance: LEVOCETIRIZINE DIHYDROCHLORIDE

REACTIONS (3)
  - Off label use [Unknown]
  - Illness [Not Recovered/Not Resolved]
  - Intentional product use issue [Unknown]
